FAERS Safety Report 7387478-9 (Version None)
Quarter: 2011Q1

REPORT INFORMATION
  Report Type: 
  Country: None (occurrence: None)
  Receive Date: 20110331
  Receipt Date: 20110323
  Transmission Date: 20110831
  Serious: Yes (Other)
  Sender: FDA-Public Use
  Company Number: US-BAXTER-2010BH024548

PATIENT
  Age: 68 Year
  Sex: Female
  Weight: 81 kg

DRUGS (13)
  1. HEPARIN SODIUM INJECTION [Suspect]
     Route: 042
     Dates: start: 20071006, end: 20071006
  2. HEPARIN SODIUM INJECTION [Suspect]
     Route: 042
     Dates: start: 20071010, end: 20071010
  3. HYDROCHLOROTHIAZIDE [Concomitant]
     Indication: PRODUCT USED FOR UNKNOWN INDICATION
     Route: 065
  4. HEPARIN SODIUM INJECTION [Suspect]
     Route: 042
     Dates: start: 20071007, end: 20071007
  5. METOPROLOL [Concomitant]
     Indication: PRODUCT USED FOR UNKNOWN INDICATION
     Route: 065
  6. WARFARIN SODIUM [Concomitant]
     Indication: PRODUCT USED FOR UNKNOWN INDICATION
     Route: 065
  7. ASPIRIN [Concomitant]
     Indication: PRODUCT USED FOR UNKNOWN INDICATION
     Route: 065
  8. SIMVASTATIN [Concomitant]
     Indication: PRODUCT USED FOR UNKNOWN INDICATION
     Route: 065
  9. HEPARIN SODIUM INJECTION [Suspect]
     Route: 042
     Dates: start: 20071008, end: 20071008
  10. HEPARIN SODIUM INJECTION [Suspect]
     Route: 042
     Dates: start: 20071009, end: 20071009
  11. HEPARIN SODIUM INJECTION [Suspect]
     Route: 042
     Dates: start: 20071005, end: 20071005
  12. HEPARIN SODIUM INJECTION [Suspect]
     Route: 042
     Dates: start: 20071011, end: 20071011
  13. HEPARIN SODIUM INJECTION [Suspect]
     Indication: CORONARY ARTERY BYPASS
     Route: 042
     Dates: start: 20071004, end: 20071004

REACTIONS (8)
  - HEPARIN-INDUCED THROMBOCYTOPENIA [None]
  - DYSPNOEA [None]
  - CONTUSION [None]
  - HOT FLUSH [None]
  - AMNESIA [None]
  - FATIGUE [None]
  - DEPRESSION [None]
  - ASTHENIA [None]
